FAERS Safety Report 8154508-6 (Version None)
Quarter: 2012Q1

REPORT INFORMATION
  Report Type: 
  Country: None (occurrence: None)
  Receive Date: 20120215
  Receipt Date: 20111019
  Transmission Date: 20120608
  Serious: Yes (Other)
  Sender: FDA-Public Use
  Company Number: AEUSA201100289

PATIENT
  Age: 85 Year
  Sex: Male
  Weight: 65.9 kg

DRUGS (6)
  1. PROFILNINE SD [Suspect]
     Indication: INTERNATIONAL NORMALISED RATIO INCREASED
     Dosage: 2500 IU; TOTAL; IV
     Route: 042
     Dates: start: 20100616, end: 20100616
  2. PROFILNINE SD [Suspect]
     Indication: HAEMORRHAGIC STROKE
     Dosage: 2500 IU; TOTAL; IV
     Route: 042
     Dates: start: 20100616, end: 20100616
  3. FACTOR VIIA [Suspect]
     Indication: INTERNATIONAL NORMALISED RATIO INCREASED
     Dosage: 1 MG; TOTAL; IV
     Route: 042
     Dates: start: 20100616, end: 20100616
  4. FACTOR VIIA [Suspect]
     Indication: HAEMORRHAGIC STROKE
     Dosage: 1 MG; TOTAL; IV
     Route: 042
     Dates: start: 20100616, end: 20100616
  5. PHYTONADIONE [Suspect]
     Indication: HAEMORRHAGIC STROKE
     Dosage: 10 MG; TOTAL; IV
     Route: 042
     Dates: start: 20100616, end: 20100616
  6. PHYTONADIONE [Suspect]
     Indication: INTERNATIONAL NORMALISED RATIO INCREASED
     Dosage: 10 MG; TOTAL; IV
     Route: 042
     Dates: start: 20100616, end: 20100616

REACTIONS (1)
  - DEEP VEIN THROMBOSIS [None]
